FAERS Safety Report 7685315-6 (Version None)
Quarter: 2011Q3

REPORT INFORMATION
  Report Type: 
  Country: None (occurrence: None)
  Receive Date: 20110816
  Receipt Date: 20110812
  Transmission Date: 20111222
  Serious: No
  Sender: FDA-Public Use
  Company Number: US-TEVA-289555USA

PATIENT

DRUGS (2)
  1. SINEMET [Suspect]
  2. AZILECT [Suspect]
     Indication: PARKINSON'S DISEASE
     Route: 048

REACTIONS (2)
  - SEXUAL DYSFUNCTION [None]
  - OBSESSIVE-COMPULSIVE DISORDER [None]
